FAERS Safety Report 20217269 (Version 1)
Quarter: 2021Q4

REPORT INFORMATION
  Report Type: Spontaneous
  Country: US (occurrence: US)
  Receive Date: 20211222
  Receipt Date: 20211222
  Transmission Date: 20220303
  Serious: No
  Sender: FDA-Public Use
  Company Number: US-UNITED THERAPEUTICS-UNT-2021-022724

PATIENT
  Age: 43 Year
  Sex: Female

DRUGS (2)
  1. REMODULIN [Suspect]
     Active Substance: TREPROSTINIL
     Indication: Pulmonary arterial hypertension
     Dosage: 0.0034 ?G/KG, CONTINUING
     Route: 058
     Dates: start: 20211104
  2. REMODULIN [Suspect]
     Active Substance: TREPROSTINIL
     Dosage: 0.0111 ?G/KG, CONTINUING
     Route: 058
     Dates: start: 2021

REACTIONS (7)
  - Headache [Unknown]
  - Diarrhoea [Unknown]
  - Infusion site pain [Unknown]
  - Nausea [Unknown]
  - Vomiting [Unknown]
  - Pain in jaw [Unknown]
  - Back pain [Unknown]

NARRATIVE: CASE EVENT DATE: 20211101
